APPROVED DRUG PRODUCT: KEFLIN IN PLASTIC CONTAINER
Active Ingredient: CEPHALOTHIN SODIUM
Strength: EQ 2GM BASE/VIAL
Dosage Form/Route: INJECTABLE;INJECTION
Application: A062549 | Product #002
Applicant: ELI LILLY AND CO
Approved: Sep 10, 1985 | RLD: No | RS: No | Type: DISCN